FAERS Safety Report 5237599-1 (Version None)
Quarter: 2007Q1

REPORT INFORMATION
  Report Type: 
  Country: None (occurrence: None)
  Receive Date: 20070213
  Receipt Date: 20070201
  Transmission Date: 20070707
  Serious: Yes (Other)
  Sender: FDA-Public Use
  Company Number: US-PFIZER INC-2007009791

PATIENT
  Sex: Female
  Weight: 65.3 kg

DRUGS (3)
  1. LYRICA [Suspect]
     Indication: PAIN
  2. NEURONTIN [Concomitant]
  3. CYMBALTA [Concomitant]

REACTIONS (8)
  - ANGER [None]
  - ANXIETY [None]
  - DISTURBANCE IN ATTENTION [None]
  - FEELING ABNORMAL [None]
  - INSOMNIA [None]
  - RESTLESSNESS [None]
  - TREMOR [None]
  - WEIGHT INCREASED [None]
